FAERS Safety Report 6070555-2 (Version None)
Quarter: 2009Q1

REPORT INFORMATION
  Report Type: 
  Country: None (occurrence: None)
  Receive Date: 20090121
  Receipt Date: 20080327
  Transmission Date: 20090719
  Serious: Yes (Other)
  Sender: FDA-Public Use
  Company Number: HQWYE004503OCT03

PATIENT
  Age: 55 Year
  Sex: Female

DRUGS (8)
  1. PREMPRO [Suspect]
     Indication: MENOPAUSE
     Dosage: ORAL
     Route: 048
     Dates: start: 19970301, end: 20020501
  2. PREMPRO [Suspect]
     Indication: MOOD SWINGS
     Dosage: ORAL
     Route: 048
     Dates: start: 19970301, end: 20020501
  3. PREMARIN [Suspect]
     Indication: MENOPAUSE
     Dates: start: 19940408, end: 19951101
  4. PREMARIN [Suspect]
     Indication: MOOD SWINGS
     Dates: start: 19940408, end: 19951101
  5. PREMPHASE 14/14 [Suspect]
     Indication: HORMONE REPLACEMENT THERAPY
     Dosage: ORAL
     Route: 048
     Dates: start: 19960323, end: 19970221
  6. PREMPHASE 14/14 [Suspect]
     Indication: HOT FLUSH
     Dosage: ORAL
     Route: 048
     Dates: start: 19960323, end: 19970221
  7. PREMPHASE 14/14 [Suspect]
     Indication: MOOD SWINGS
     Dosage: ORAL
     Route: 048
     Dates: start: 19960323, end: 19970221
  8. PROVERA [Suspect]
     Indication: MOOD SWINGS
     Dates: start: 19940408, end: 19951101

REACTIONS (1)
  - BREAST CANCER [None]
